FAERS Safety Report 5374223-1 (Version None)
Quarter: 2007Q2

REPORT INFORMATION
  Report Type: 
  Country: None (occurrence: None)
  Receive Date: 20070627
  Receipt Date: 20060914
  Transmission Date: 20071010
  Serious: Yes (Hospitalization)
  Sender: FDA-Public Use
  Company Number: 463523

PATIENT
  Age: 58 Year
  Sex: Female
  Weight: 88.5 kg

DRUGS (5)
  1. XELODA [Suspect]
     Indication: COLON CANCER
     Dosage: 2000 MG 2 PER 1 DAY
     Dates: start: 20060525
  2. DIOVAN [Concomitant]
  3. AVASTIN [Concomitant]
  4. CRESCORMON (SOMATROPIN) [Concomitant]
  5. LEVOXYL [Concomitant]

REACTIONS (1)
  - THROMBOSIS [None]
